FAERS Safety Report 24255313 (Version 1)
Quarter: 2024Q3

REPORT INFORMATION
  Report Type: Spontaneous
  Country: US (occurrence: US)
  Receive Date: 20240827
  Receipt Date: 20240827
  Transmission Date: 20241017
  Serious: No
  Sender: MERCK
  Company Number: US-009507513-2408USA001196

PATIENT
  Sex: Male
  Weight: 90.7 kg

DRUGS (10)
  1. WINREVAIR [Suspect]
     Active Substance: SOTATERCEPT-CSRK
     Indication: Product used for unknown indication
     Dosage: UNK
  2. REMODULIN [Suspect]
     Active Substance: TREPROSTINIL
     Indication: Pulmonary arterial hypertension
     Dosage: 0.096 MICROGRAM PER KILOGRAM, CONTINUOUS
     Route: 041
  3. FISH OIL [Concomitant]
     Active Substance: FISH OIL
  4. TADALAFIL [Concomitant]
     Active Substance: TADALAFIL
  5. ATORVASTATIN CALCIUM [Concomitant]
     Active Substance: ATORVASTATIN CALCIUM
  6. ELIQUIS [Concomitant]
     Active Substance: APIXABAN
  7. METOPROLOL SUCCINATE [Concomitant]
     Active Substance: METOPROLOL SUCCINATE
  8. IMODIUM A-D [Concomitant]
     Active Substance: LOPERAMIDE HYDROCHLORIDE
  9. OXYGEN [Concomitant]
     Active Substance: OXYGEN
  10. MULTAQ [Concomitant]
     Active Substance: DRONEDARONE

REACTIONS (1)
  - Haemoglobin increased [Unknown]
